FAERS Safety Report 4591228-9 (Version None)
Quarter: 2005Q1

REPORT INFORMATION
  Report Type: 
  Country: None (occurrence: None)
  Receive Date: 20050222
  Receipt Date: 20050203
  Transmission Date: 20050727
  Serious: Yes (Life-Threatening)
  Sender: FDA-Public Use
  Company Number: DSA_25625_2005

PATIENT
  Age: 66 Year
  Sex: Female
  Weight: 88 kg

DRUGS (8)
  1. TEVETEN [Suspect]
     Indication: HYPERTENSION
     Dosage: 600 MG Q DAY PO
     Route: 048
     Dates: start: 20040217, end: 20040311
  2. TEVETEN [Suspect]
     Indication: HYPERTENSION
     Dosage: 300 MG Q DAY, PO
     Route: 048
     Dates: start: 20040311, end: 20040618
  3. ADALAT OROS [Concomitant]
  4. METOPROLOL [Concomitant]
  5. BURINEX [Concomitant]
  6. OXAZEPAM [Concomitant]
  7. DICLOFENAC [Concomitant]
  8. CINNARIZINE [Concomitant]

REACTIONS (5)
  - DIZZINESS [None]
  - HAEMOGLOBIN DECREASED [None]
  - METASTASES TO LIVER [None]
  - METASTASES TO LUNG [None]
  - RENAL CELL CARCINOMA RECURRENT [None]
